FAERS Safety Report 19038752 (Version 2)
Quarter: 2021Q2

REPORT INFORMATION
  Report Type: Spontaneous
  Country: GB (occurrence: GB)
  Receive Date: 20210322
  Receipt Date: 20210525
  Transmission Date: 20210717
  Serious: Yes (Hospitalization, Other)
  Sender: FDA-Public Use
  Company Number: GB-DRREDDYS-GER/UKI/21/0133223

PATIENT
  Age: 24 Year
  Sex: Male

DRUGS (13)
  1. SODIUM VALPROATE [Concomitant]
     Active Substance: VALPROATE SODIUM
     Indication: PRODUCT USED FOR UNKNOWN INDICATION
     Dosage: 18.75 MMOL, DAILY
     Route: 065
  2. CLOZARIL [Suspect]
     Active Substance: CLOZAPINE
     Dosage: UNK, DAILY
     Route: 048
     Dates: start: 20191120, end: 20191202
  3. LITHIUM CITRATE. [Concomitant]
     Active Substance: LITHIUM CITRATE
     Indication: PRODUCT USED FOR UNKNOWN INDICATION
     Dosage: 1 DF, QD (PM)
     Route: 005
  4. SODIUM VALPROATE [Concomitant]
     Active Substance: VALPROATE SODIUM
     Dosage: 25 MILLIMOLE, PM
  5. OLANZAPINE. [Suspect]
     Active Substance: OLANZAPINE
     Indication: PRODUCT USED FOR UNKNOWN INDICATION
     Dosage: UNK UNK, UNKNOWN
     Route: 065
  6. CLOZARIL [Suspect]
     Active Substance: CLOZAPINE
     Indication: SCHIZOPHRENIA
     Dosage: UNK, DAILY
     Route: 048
     Dates: start: 20181212, end: 20181231
  7. QUETIAPINE. [Concomitant]
     Active Substance: QUETIAPINE
     Indication: PRODUCT USED FOR UNKNOWN INDICATION
     Dosage: 20 MMOL, DAILY (PM)
     Route: 065
  8. SODIUM VALPROATE [Concomitant]
     Active Substance: VALPROATE SODIUM
     Dosage: 25 MMOL, DAILY
     Route: 065
  9. QUETIAPINE. [Concomitant]
     Active Substance: QUETIAPINE
     Dosage: 10 ML, DAILY (AM)
     Route: 065
  10. CLOZARIL [Suspect]
     Active Substance: CLOZAPINE
     Dosage: UNK UNK, UNKNOWN
     Route: 048
     Dates: start: 20181115
  11. SODIUM VALPROATE [Concomitant]
     Active Substance: VALPROATE SODIUM
  12. CLONAZEPAM. [Concomitant]
     Active Substance: CLONAZEPAM
     Indication: PRODUCT USED FOR UNKNOWN INDICATION
     Dosage: 2.5 ML, DAILY
     Route: 048
  13. LITHIUM CITRATE. [Concomitant]
     Active Substance: LITHIUM CITRATE
     Dosage: 15 ML (600MG), DAILY
     Route: 005

REACTIONS (9)
  - Malaise [Unknown]
  - White blood cell count increased [Recovered/Resolved]
  - White blood cell count decreased [Recovered/Resolved]
  - Neutrophil count increased [Recovered/Resolved]
  - Neutropenia [Recovered/Resolved]
  - Eosinophilia [Recovered/Resolved]
  - Abnormal behaviour [Unknown]
  - Drug ineffective [Unknown]
  - Aggression [Unknown]

NARRATIVE: CASE EVENT DATE: 201811
